FAERS Safety Report 24987816 (Version 1)
Quarter: 2025Q1

REPORT INFORMATION
  Report Type: Report from Study
  Country: US (occurrence: US)
  Receive Date: 20250219
  Receipt Date: 20250219
  Transmission Date: 20250408
  Serious: Yes (Hospitalization, Other)
  Sender: ABBVIE
  Company Number: US-ABBVIE-6071279

PATIENT
  Age: 61 Year
  Sex: Female
  Weight: 45 kg

DRUGS (22)
  1. SKYRIZI [Suspect]
     Active Substance: RISANKIZUMAB-RZAA
     Indication: Crohn^s disease
     Route: 058
     Dates: start: 20240115, end: 20241126
  2. LEVOTHYROXINE [Concomitant]
     Active Substance: LEVOTHYROXINE
     Indication: Hypothyroidism
     Dosage: 88 MCG ONCE A DAY
     Dates: start: 20241001
  3. ESTRADIOL [Concomitant]
     Active Substance: ESTRADIOL
     Indication: Menopause
     Dates: start: 20240904
  4. CITALOPRAM HYDROBROMIDE [Concomitant]
     Active Substance: CITALOPRAM HYDROBROMIDE
     Indication: Depressed mood
     Dates: start: 200909
  5. DICLOFENAC SODIUM [Concomitant]
     Active Substance: DICLOFENAC SODIUM
     Indication: Arthralgia
     Route: 061
     Dates: start: 202109
  6. HYDROCORTISONE [Concomitant]
     Active Substance: HYDROCORTISONE
     Indication: Rash
     Dosage: 1% TOPICAL CREAM TWICE A DAY
     Route: 061
     Dates: start: 202109
  7. POTASSIUM CHLORIDE [Concomitant]
     Active Substance: POTASSIUM CHLORIDE
     Indication: Crohn^s disease
     Dosage: 20 MEQ, 1 TAB, 4 TIMES A DAY
     Dates: start: 201809
  8. MAGNESIUM [Concomitant]
     Active Substance: MAGNESIUM
     Indication: Crohn^s disease
     Dates: start: 20230120
  9. XIIDRA [Concomitant]
     Active Substance: LIFITEGRAST
     Indication: Dry eye
     Dosage: TWICE DAILY
     Dates: start: 20230707
  10. VITAMIN D [Concomitant]
     Active Substance: VITAMIN D NOS
     Indication: Hypothyroidism
     Dosage: 2000 UNITS PER DAY
     Dates: start: 202409
  11. CALCIUM [Concomitant]
     Active Substance: CALCIUM
     Indication: Bone loss
     Dosage: 1 TAB TWICE
     Dates: start: 202010
  12. RECLAST [Concomitant]
     Active Substance: ZOLEDRONIC ACID
     Indication: Osteoporosis
     Dates: start: 20241016
  13. Bone Restore [Concomitant]
     Indication: Bone loss
     Dates: start: 202103
  14. ONDANSETRON HYDROCHLORIDE [Concomitant]
     Active Substance: ONDANSETRON HYDROCHLORIDE
     Indication: Product used for unknown indication
     Dates: start: 202208
  15. TYLENOL [Concomitant]
     Active Substance: ACETAMINOPHEN
     Indication: Pain
  16. CYANOCOBALAMIN\DEXPANTHENOL\NIACINAMIDE\PYRIDOXINE HYDROCHLORIDE\RIBOF [Concomitant]
     Active Substance: CYANOCOBALAMIN\DEXPANTHENOL\NIACINAMIDE\PYRIDOXINE HYDROCHLORIDE\RIBOFLAVIN 5^-PHOSPHATE SODIUM\THIA
     Indication: Product used for unknown indication
     Dosage: 1 TABS DAILY
     Dates: start: 200910
  17. TRAMADOL HCL [Concomitant]
     Active Substance: TRAMADOL HYDROCHLORIDE
     Indication: Abdominal pain upper
     Dates: start: 201412
  18. GABAPENTIN [Concomitant]
     Active Substance: GABAPENTIN
     Indication: Product used for unknown indication
     Dates: start: 202401
  19. PREDNISONE [Concomitant]
     Active Substance: PREDNISONE
     Indication: Rheumatoid arthritis
     Dates: start: 20240330
  20. AZATHIOPRINE [Concomitant]
     Active Substance: AZATHIOPRINE
     Indication: Rheumatoid arthritis
     Dates: start: 20240330
  21. PANTOPRAZOLE [Concomitant]
     Active Substance: PANTOPRAZOLE
     Indication: Peptic ulcer
     Dosage: 2 TIMES A DAILY
     Dates: start: 20230929
  22. SULFASALAZINE [Concomitant]
     Active Substance: SULFASALAZINE
     Indication: Arthralgia
     Dosage: TWICE A DAY
     Dates: start: 20240809

REACTIONS (18)
  - Small intestinal obstruction [Unknown]
  - Unevaluable event [Recovered/Resolved]
  - Blood lactic acid abnormal [Recovered/Resolved]
  - Fluid retention [Recovered/Resolved]
  - Oesophageal disorder [Unknown]
  - Acute kidney injury [Unknown]
  - Dehydration [Unknown]
  - Rheumatoid arthritis [Unknown]
  - Crohn^s disease [Unknown]
  - Blood creatine abnormal [Unknown]
  - Hypotension [Unknown]
  - Hypothyroidism [Unknown]
  - Menopause [Unknown]
  - Blood lactic acid abnormal [Unknown]
  - Gastrooesophageal reflux disease [Unknown]
  - White blood cell count increased [Unknown]
  - Dehydration [Recovered/Resolved]
  - Acute kidney injury [Recovered/Resolved]

NARRATIVE: CASE EVENT DATE: 20240101
